FAERS Safety Report 4537582-5 (Version None)
Quarter: 2004Q4

REPORT INFORMATION
  Report Type: 
  Country: None (occurrence: None)
  Receive Date: 20041221
  Receipt Date: 20041108
  Transmission Date: 20050328
  Serious: No
  Sender: FDA-Public Use
  Company Number: A-US2004-08027

PATIENT
  Age: 62 Year
  Sex: Male

DRUGS (15)
  1. TRACLEER [Suspect]
     Indication: PULMONARY HYPERTENSION
     Dosage: 62.5 MG, BID, ORAL
     Route: 048
     Dates: start: 20040901
  2. CYCLOSPORINE [Concomitant]
  3. OXYGEN (OXYCEN) [Concomitant]
  4. HYDRALAZINE HCL TAB [Concomitant]
  5. MAGENESIUM [Concomitant]
  6. POTASSIUM (POTASSIUM) [Concomitant]
  7. MULTIVITAMIN [Concomitant]
  8. SINGULAIR [Concomitant]
  9. ACETYLSALICYLIC ACID SRT [Concomitant]
  10. DILTIAZEM [Concomitant]
  11. FLOMAX [Concomitant]
  12. MUCINEX [Concomitant]
  13. COMBIVENT (SALBUTAMOL SULFATE, IPRATROPIUM BROMIDE) [Concomitant]
  14. ATROVENT (IPRATROPIUM BROMIDE0 [Concomitant]
  15. PREDNISONE [Concomitant]

REACTIONS (1)
  - DYSPNOEA EXACERBATED [None]
